FAERS Safety Report 9494879 (Version 2)
Quarter: 2013Q3

REPORT INFORMATION
  Report Type: Report from Study
  Country: DE (occurrence: DE)
  Receive Date: 20130903
  Receipt Date: 20130903
  Transmission Date: 20140515
  Serious: Yes (Hospitalization)
  Sender: FDA-Public Use
  Company Number: DE-SANOFI-AVENTIS-200711661DE

PATIENT
  Age: 68 Year
  Sex: Female
  Weight: 73.5 kg

DRUGS (2)
  1. DOCETAXEL [Suspect]
     Indication: BREAST CANCER
     Route: 041
     Dates: start: 20070322, end: 20070322
  2. FORTECORTIN [Concomitant]
     Indication: BREAST CANCER
     Route: 041
     Dates: start: 20070322, end: 20070322

REACTIONS (7)
  - Nausea [Recovered/Resolved]
  - Abdominal pain upper [Recovered/Resolved]
  - Back pain [Recovered/Resolved]
  - Fatigue [Recovered/Resolved]
  - Febrile neutropenia [Recovered/Resolved]
  - Tinnitus [Recovered/Resolved]
  - Renal pain [Recovered/Resolved]
